FAERS Safety Report 11305795 (Version 1)
Quarter: 2015Q3

REPORT INFORMATION
  Report Type: Spontaneous
  Country: US (occurrence: US)
  Receive Date: 20150723
  Receipt Date: 20150723
  Transmission Date: 20151125
  Serious: No
  Sender: FDA-Public Use
  Company Number: US-GALDERMA-US14002796

PATIENT
  Age: 78 Year
  Sex: Female

DRUGS (11)
  1. ACETAMINOPHEN. [Concomitant]
     Active Substance: ACETAMINOPHEN
     Indication: ARTHRALGIA
     Dosage: 500 MG
     Route: 048
  2. ULTRAM [Concomitant]
     Active Substance: TRAMADOL HYDROCHLORIDE
     Indication: ARTHRALGIA
     Route: 048
  3. LOSARTAN POTASSIUM. [Concomitant]
     Active Substance: LOSARTAN POTASSIUM
     Indication: HYPERTENSION
     Dosage: 25 MG
     Route: 048
  4. BIOTIN [Concomitant]
     Active Substance: BIOTIN
     Indication: ALOPECIA
     Route: 048
  5. FINACEA (AZELAIC ACID) CREAM [Concomitant]
     Indication: ROSACEA
     Route: 061
     Dates: start: 20140628
  6. ALIGN PROBIOTIC [Concomitant]
     Route: 048
     Dates: start: 201401
  7. VALIUM [Concomitant]
     Active Substance: DIAZEPAM
     Dosage: 5 MG
     Route: 048
  8. ORACEA [Suspect]
     Active Substance: DOXYCYCLINE
     Indication: ROSACEA
     Dosage: 40 MG
     Route: 048
     Dates: start: 20140703
  9. OMEGA 3 FISH OIL [Concomitant]
     Active Substance: FISH OIL\OMEGA-3 FATTY ACIDS
     Dosage: 3 CAPSULES
     Route: 048
  10. PROTONIX [Concomitant]
     Active Substance: PANTOPRAZOLE SODIUM
     Route: 048
     Dates: start: 201401
  11. ASPIRIN. [Concomitant]
     Active Substance: ASPIRIN
     Indication: ROSACEA
     Dosage: 81 MG
     Route: 048

REACTIONS (7)
  - Abdominal pain lower [Not Recovered/Not Resolved]
  - Flatulence [Recovering/Resolving]
  - Peripheral swelling [Recovering/Resolving]
  - Diplopia [Recovered/Resolved]
  - Myalgia [Recovered/Resolved]
  - Joint swelling [Recovering/Resolving]
  - Blood pressure systolic increased [Recovered/Resolved]

NARRATIVE: CASE EVENT DATE: 201407
